FAERS Safety Report 4838397-0 (Version None)
Quarter: 2005Q4

REPORT INFORMATION
  Report Type: 
  Country: None (occurrence: None)
  Receive Date: 20051128
  Receipt Date: 20050914
  Transmission Date: 20060501
  Serious: Yes (Death, Other)
  Sender: FDA-Public Use
  Company Number: PHEH2005US10199

PATIENT
  Age: 62 Year
  Sex: Male

DRUGS (6)
  1. AREDIA [Suspect]
     Indication: MULTIPLE MYELOMA
     Dosage: 90 MG, QMO
     Dates: end: 20041207
  2. THALIDOMIDE [Concomitant]
  3. VELCADE [Concomitant]
  4. DEXAMETHASONE [Concomitant]
  5. MELPHALAN [Concomitant]
     Dosage: 4 CYCLES
  6. PREDNISONE [Concomitant]
     Dosage: 4 CYCLES

REACTIONS (16)
  - ABSCESS [None]
  - BONE DISORDER [None]
  - DRY SOCKET [None]
  - GRAM STAIN POSITIVE [None]
  - HYPERBARIC OXYGEN THERAPY [None]
  - IMPAIRED HEALING [None]
  - MALIGNANT NEOPLASM PROGRESSION [None]
  - ORAL PAIN [None]
  - ORAL SOFT TISSUE DISORDER [None]
  - OSTEONECROSIS [None]
  - RETINAL HAEMORRHAGE [None]
  - TOOTH DISORDER [None]
  - TOOTH EXTRACTION [None]
  - TOOTHACHE [None]
  - WOUND DEBRIDEMENT [None]
  - WOUND DEHISCENCE [None]
